FAERS Safety Report 21194281 (Version 1)
Quarter: 2022Q3

REPORT INFORMATION
  Report Type: Spontaneous
  Country: JP (occurrence: JP)
  Receive Date: 20220810
  Receipt Date: 20220810
  Transmission Date: 20221027
  Serious: Yes (Other)
  Sender: FDA-Public Use
  Company Number: JP-MYLANLABS-2022M1084426

PATIENT
  Age: 83 Year
  Sex: Female

DRUGS (4)
  1. VERAPAMIL [Suspect]
     Active Substance: VERAPAMIL HYDROCHLORIDE
     Indication: Tachyarrhythmia
     Dosage: 120 MILLIGRAM, QD (40 MG X 3/DAY))
     Route: 048
  2. VERAPAMIL [Suspect]
     Active Substance: VERAPAMIL HYDROCHLORIDE
     Dosage: 80 MILLIGRAM, PRN (AS NEEDED)
     Route: 048
  3. PILSICAINIDE HYDROCHLORIDE [Concomitant]
     Active Substance: PILSICAINIDE HYDROCHLORIDE
     Dosage: UNK UNK, TID (FROM THREE TIMES A DAY (AFTER EACH MEAL) )
     Route: 065
  4. PILSICAINIDE HYDROCHLORIDE [Concomitant]
     Active Substance: PILSICAINIDE HYDROCHLORIDE
     Dosage: UNK UNK, BID (TWICE A DAY (AFTER BREAKFAST AND DINNER).
     Route: 065

REACTIONS (2)
  - Renal impairment [Unknown]
  - Palpitations [Unknown]
